FAERS Safety Report 22792871 (Version 2)
Quarter: 2023Q4

REPORT INFORMATION
  Report Type: Report from Study
  Country: US (occurrence: US)
  Receive Date: 20230807
  Receipt Date: 20231026
  Transmission Date: 20240109
  Serious: No
  Sender: FDA-Public Use
  Company Number: US-002147023-NVSC2023US171617

PATIENT
  Sex: Male

DRUGS (3)
  1. ENTRESTO [Suspect]
     Active Substance: SACUBITRIL\VALSARTAN
     Indication: Product used for unknown indication
     Dosage: UNK
     Route: 065
  2. JARDIANCE [Concomitant]
     Active Substance: EMPAGLIFLOZIN
     Indication: Blood pressure increased
     Dosage: UNK (AT NIGHT)
     Route: 065
  3. JARDIANCE [Concomitant]
     Active Substance: EMPAGLIFLOZIN
     Indication: Blood glucose increased

REACTIONS (6)
  - Dyspnoea [Recovering/Resolving]
  - Swelling [Recovering/Resolving]
  - Tooth abscess [Unknown]
  - Weight increased [Unknown]
  - Fatigue [Recovering/Resolving]
  - Dizziness [Unknown]
